FAERS Safety Report 25128564 (Version 1)
Quarter: 2025Q1

REPORT INFORMATION
  Report Type: Spontaneous
  Country: JP (occurrence: JP)
  Receive Date: 20250327
  Receipt Date: 20250327
  Transmission Date: 20250408
  Serious: Yes (Other)
  Sender: CELLTRION
  Company Number: JP-JPNKAYAKU-2025JPNK047839

PATIENT

DRUGS (7)
  1. TRASTUZUMAB [Suspect]
     Active Substance: TRASTUZUMAB
     Indication: Breast cancer stage IV
     Route: 042
  2. PERTUZUMAB [Suspect]
     Active Substance: PERTUZUMAB
     Indication: Breast cancer stage IV
     Route: 065
  3. DOCETAXEL [Suspect]
     Active Substance: DOCETAXEL
     Indication: Breast cancer stage IV
     Route: 065
  4. ERIBULIN [Suspect]
     Active Substance: ERIBULIN
     Indication: Breast cancer stage IV
     Route: 065
  5. ADO-TRASTUZUMAB EMTANSINE [Suspect]
     Active Substance: ADO-TRASTUZUMAB EMTANSINE
     Indication: Breast cancer stage IV
     Route: 065
  6. TRASTUZUMAB DERUXTECAN [Suspect]
     Active Substance: TRASTUZUMAB DERUXTECAN
     Indication: Breast cancer stage IV
     Route: 065
  7. PHESGO [Suspect]
     Active Substance: HYALURONIDASE-ZZXF\PERTUZUMAB\TRASTUZUMAB
     Indication: Breast cancer stage IV
     Route: 065

REACTIONS (3)
  - Myelodysplastic syndrome [Unknown]
  - Leukaemia [Recovering/Resolving]
  - Therapy non-responder [Recovered/Resolved]
